FAERS Safety Report 8927959 (Version 1)
Quarter: 2012Q4

REPORT INFORMATION
  Report Type: Spontaneous
  Country: US (occurrence: None)
  Receive Date: 20121121
  Receipt Date: 20121121
  Transmission Date: 20130627
  Serious: Yes (Other)
  Sender: FDA-Public Use
  Company Number: None

PATIENT
  Age: 39 Year
  Sex: Female
  Weight: 74.84 kg

DRUGS (2)
  1. ASPIRIN [Suspect]
     Indication: CARDIAC DISORDER
     Dosage: 1 pill  2-3 hours
     Dates: start: 20110211
  2. MINOCYCLINE [Suspect]
     Indication: INFECTION
     Dosage: 3 time a day
     Dates: start: 20120619

REACTIONS (8)
  - Skin disorder [None]
  - Pruritus [None]
  - Product quality issue [None]
  - Product tampering [None]
  - Muscle atrophy [None]
  - Lipoatrophy [None]
  - Soft tissue atrophy [None]
  - Reproductive tract disorder [None]
